FAERS Safety Report 20371501 (Version 1)
Quarter: 2022Q1

REPORT INFORMATION
  Report Type: Spontaneous
  Country: US (occurrence: US)
  Receive Date: 20220124
  Receipt Date: 20220124
  Transmission Date: 20220423
  Serious: No
  Sender: FDA-Public Use
  Company Number: US-BoehringerIngelheim-2022-BI-108822

PATIENT
  Age: 68 Year
  Sex: Female

DRUGS (3)
  1. SPIRIVA RESPIMAT [Suspect]
     Active Substance: TIOTROPIUM BROMIDE
     Indication: Chronic obstructive pulmonary disease
  2. SPIRIVA [Suspect]
     Active Substance: TIOTROPIUM BROMIDE MONOHYDRATE
     Indication: Chronic obstructive pulmonary disease
  3. ATROVENT HFA [Suspect]
     Active Substance: IPRATROPIUM BROMIDE
     Indication: Chronic obstructive pulmonary disease
     Dosage: TWO PUFFS; INHALATION AEROSOL
     Dates: start: 20220109, end: 20220109

REACTIONS (7)
  - Chest pain [Recovered/Resolved]
  - Palpitations [Recovered/Resolved]
  - Dizziness [Recovered/Resolved]
  - Asthenia [Recovered/Resolved]
  - Eye pain [Recovered/Resolved]
  - Headache [Recovered/Resolved]
  - Productive cough [Not Recovered/Not Resolved]

NARRATIVE: CASE EVENT DATE: 20220109
